FAERS Safety Report 8934522 (Version 1)
Quarter: 2012Q4

REPORT INFORMATION
  Report Type: 
  Country: US (occurrence: US)
  Receive Date: 20121129
  Receipt Date: 20121129
  Transmission Date: 20130627
  Serious: No
  Sender: FDA-Public Use
  Company Number: US-GLAXOSMITHKLINE-A0974187A

PATIENT
  Age: 72 Year
  Sex: Female

DRUGS (18)
  1. FLOVENT [Suspect]
     Indication: ASTHMA
     Route: 055
  2. BACTRIM DS [Concomitant]
  3. CHLORTHALIDONE [Concomitant]
  4. FLUOXETINE [Concomitant]
  5. FUROSEMIDE [Concomitant]
  6. KLOR CON [Concomitant]
  7. ZOLPIDEM [Concomitant]
  8. FLUTICASONE [Concomitant]
  9. ASTEPRO [Concomitant]
  10. ZYRTEC [Concomitant]
  11. PREVACID [Concomitant]
  12. GUIAFENESIN-DM [Concomitant]
  13. BABY ASPIRIN [Concomitant]
  14. FISH OIL [Concomitant]
  15. CALCIUM [Concomitant]
  16. VITAMIN B12 [Concomitant]
  17. VITAMIN D [Concomitant]
  18. MULTI-VITAMIN [Concomitant]

REACTIONS (4)
  - Candidiasis [Unknown]
  - Cough [Not Recovered/Not Resolved]
  - Dysphonia [Not Recovered/Not Resolved]
  - Product quality issue [Unknown]
